FAERS Safety Report 6253738-8 (Version None)
Quarter: 2009Q2

REPORT INFORMATION
  Report Type: 
  Country: None (occurrence: None)
  Receive Date: 20090630
  Receipt Date: 20090616
  Transmission Date: 20091009
  Serious: Yes (Hospitalization)
  Sender: FDA-Public Use
  Company Number: 20090251

PATIENT
  Age: 83 Year
  Sex: Female
  Weight: 65 kg

DRUGS (2)
  1. DEXFERRUM (IRON DEXTRAN INJECTION, USP)50 MG/ML FE+++ [Suspect]
     Indication: HAEMOGLOBIN DECREASED
     Dosage: 100MG/2ML INJECTION, INTRAVENOUS
     Route: 042
     Dates: start: 20090616
  2. DEXFERRUM (IRON DEXTRAN INJECTION, USP)50 MG/ML FE+++ [Suspect]
     Indication: IRON DEFICIENCY ANAEMIA
     Dosage: 100MG/2ML INJECTION, INTRAVENOUS
     Route: 042
     Dates: start: 20090616

REACTIONS (4)
  - INFUSION SITE DISCOLOURATION [None]
  - INFUSION SITE EXTRAVASATION [None]
  - INFUSION SITE PAIN [None]
  - INJECTION SITE SWELLING [None]
